FAERS Safety Report 9615389 (Version 1)
Quarter: 2013Q4

REPORT INFORMATION
  Report Type: Spontaneous
  Country: US (occurrence: None)
  Receive Date: 20131010
  Receipt Date: 20131010
  Transmission Date: 20140711
  Serious: Yes (Hospitalization, Other)
  Sender: FDA-Public Use
  Company Number: None

PATIENT
  Age: 71 Year
  Sex: Female

DRUGS (1)
  1. ENBREL SURE 50MG [Suspect]
     Indication: RHEUMATOID ARTHRITIS
     Dosage: 50 MG, QWK, SC
     Route: 058
     Dates: start: 20130611

REACTIONS (3)
  - Lung neoplasm malignant [None]
  - Bone cancer [None]
  - Jaw disorder [None]
